FAERS Safety Report 13028678 (Version 1)
Quarter: 2016Q4

REPORT INFORMATION
  Report Type: Spontaneous
  Country: AU (occurrence: AU)
  Receive Date: 20161214
  Receipt Date: 20161214
  Transmission Date: 20170207
  Serious: Yes (Other)
  Sender: FDA-Public Use
  Company Number: AU-BAUSCH-BL-2016-031545

PATIENT
  Age: 10 Year
  Sex: Female

DRUGS (3)
  1. METRONIDAZOLE. [Suspect]
     Active Substance: METRONIDAZOLE
     Indication: PERIORBITAL CELLULITIS
     Route: 065
  2. FLUCLOXACILLIN SODIUM [Suspect]
     Active Substance: FLUCLOXACILLIN
     Indication: PERIORBITAL CELLULITIS
     Route: 065
  3. CEFTRIAXONE. [Suspect]
     Active Substance: CEFTRIAXONE
     Indication: PERIORBITAL CELLULITIS
     Route: 042

REACTIONS (5)
  - Subdural empyema [Unknown]
  - Computerised tomogram abnormal [Unknown]
  - Drug resistance [Unknown]
  - Cellulitis orbital [Recovering/Resolving]
  - Ophthalmic vein thrombosis [Unknown]
